FAERS Safety Report 4604001-X (Version None)
Quarter: 2005Q1

REPORT INFORMATION
  Report Type: 
  Country: None (occurrence: None)
  Receive Date: 20050308
  Receipt Date: 20050303
  Transmission Date: 20050727
  Serious: Yes (Hospitalization)
  Sender: FDA-Public Use
  Company Number: 2005BI003076

PATIENT
  Age: 46 Year
  Sex: Male

DRUGS (9)
  1. NATALIZUMAB [Suspect]
     Indication: MULTIPLE SCLEROSIS
     Dosage: 300 MG; QM; IV
     Route: 042
     Dates: start: 20020924, end: 20041213
  2. AVONEX [Suspect]
     Indication: MULTIPLE SCLEROSIS
     Dosage: 30 UG; QQ; IM
     Route: 042
     Dates: start: 20010101
  3. LEVITRA [Concomitant]
  4. CLARITIN-D [Concomitant]
  5. BENADRYL [Concomitant]
  6. NASAREL [Concomitant]
  7. TAZORAC CREAM [Concomitant]
  8. NORITATE [Concomitant]
  9. BENZACLIN [Concomitant]

REACTIONS (10)
  - BRADYPHRENIA [None]
  - COGNITIVE DISORDER [None]
  - CREUTZFELDT-JAKOB DISEASE [None]
  - DEMYELINATION [None]
  - DYSARTHRIA [None]
  - GENERAL PHYSICAL HEALTH DETERIORATION [None]
  - HEMIPARESIS [None]
  - NUCLEAR MAGNETIC RESONANCE IMAGING BRAIN ABNORMAL [None]
  - PROGRESSIVE MULTIFOCAL LEUKOENCEPHALOPATHY [None]
  - SENSORY DISTURBANCE [None]
